FAERS Safety Report 18099674 (Version 1)
Quarter: 2020Q3

REPORT INFORMATION
  Report Type: Spontaneous
  Country: CN (occurrence: CN)
  Receive Date: 20200731
  Receipt Date: 20200731
  Transmission Date: 20201103
  Serious: Yes (Other)
  Sender: FDA-Public Use
  Company Number: CN-PFIZER INC-2020289481

PATIENT
  Age: 16 Year
  Sex: Male
  Weight: 49 kg

DRUGS (1)
  1. ZITHROMAX [Suspect]
     Active Substance: AZITHROMYCIN DIHYDRATE
     Indication: TONSILLITIS BACTERIAL
     Dosage: 0.5 G, 1X/DAY
     Route: 041
     Dates: start: 20200714, end: 20200714

REACTIONS (3)
  - Cold sweat [Recovering/Resolving]
  - Asthenia [Recovering/Resolving]
  - Peripheral coldness [Recovering/Resolving]

NARRATIVE: CASE EVENT DATE: 20200714
